FAERS Safety Report 4791896-2 (Version None)
Quarter: 2005Q4

REPORT INFORMATION
  Report Type: 
  Country: None (occurrence: None)
  Receive Date: 20051005
  Receipt Date: 20050919
  Transmission Date: 20060501
  Serious: Yes (Hospitalization)
  Sender: FDA-Public Use
  Company Number: 2005-DE-03812GD

PATIENT
  Sex: 0

DRUGS (1)
  1. PARACETAMOL/CODEINE [Suspect]
     Indication: PROCEDURAL PAIN
     Dosage: DAY 1:  2 TABLETS (300 MG PARACETAMOL(30 MG CODEINE) EVERY 6 HOURS (SEE TEXT, EVERY 6 HOURS), PO
     Route: 048

REACTIONS (1)
  - BILE DUCT STONE [None]
